FAERS Safety Report 8103654-1 (Version None)
Quarter: 2012Q1

REPORT INFORMATION
  Report Type: 
  Country: None (occurrence: None)
  Receive Date: 20120201
  Receipt Date: 20120120
  Transmission Date: 20120608
  Serious: Yes (Other)
  Sender: FDA-Public Use
  Company Number: US-ROCHE-1034085

PATIENT
  Sex: Male

DRUGS (2)
  1. PEGASYS [Suspect]
     Indication: HEPATITIS C
     Dates: start: 20111125
  2. RIBAVIRIN [Suspect]
     Indication: HEPATITIS C
     Dates: start: 20111125

REACTIONS (1)
  - POLLAKIURIA [None]
